FAERS Safety Report 7888144-3 (Version None)
Quarter: 2011Q4

REPORT INFORMATION
  Report Type: 
  Country: None (occurrence: None)
  Receive Date: 20111103
  Receipt Date: 20111021
  Transmission Date: 20120403
  Serious: Yes (Hospitalization)
  Sender: FDA-Public Use
  Company Number: US-BAYER-2011-050469

PATIENT
  Sex: Female

DRUGS (2)
  1. TRAMADOL HCL [Concomitant]
  2. YAZ [Suspect]
     Dosage: UNK
     Dates: start: 20080101, end: 20090101

REACTIONS (3)
  - CHOLECYSTITIS CHRONIC [None]
  - CHOLECYSTECTOMY [None]
  - PAIN [None]
